FAERS Safety Report 5640773-3 (Version None)
Quarter: 2008Q1

REPORT INFORMATION
  Report Type: 
  Country: None (occurrence: None)
  Receive Date: 20080227
  Receipt Date: 20080218
  Transmission Date: 20080703
  Serious: Yes (Other)
  Sender: FDA-Public Use
  Company Number: US-JNJFOC-20080205061

PATIENT
  Sex: Female
  Weight: 65.77 kg

DRUGS (3)
  1. DURAGESIC-100 [Suspect]
     Route: 062
  2. DURAGESIC-100 [Suspect]
     Indication: PAIN
     Route: 062
  3. CLARITIN [Concomitant]
     Indication: MULTIPLE ALLERGIES
     Route: 048

REACTIONS (3)
  - EXPIRED DRUG ADMINISTERED [None]
  - INFLUENZA [None]
  - TENDONITIS [None]
